FAERS Safety Report 6862700-3 (Version None)
Quarter: 2010Q3

REPORT INFORMATION
  Report Type: 
  Country: None (occurrence: None)
  Receive Date: 20100721
  Receipt Date: 20100708
  Transmission Date: 20110219
  Serious: No
  Sender: FDA-Public Use
  Company Number: JP-ROCHE-711429

PATIENT
  Sex: Female

DRUGS (7)
  1. TOCILIZUMAB [Suspect]
     Indication: RHEUMATOID ARTHRITIS
     Dosage: DOSE: UNCERTAIN,  DRUG DISCONTINUED.
     Route: 041
     Dates: start: 20040406, end: 20080609
  2. RHEUMATREX [Suspect]
     Indication: RHEUMATOID ARTHRITIS
     Dosage: DRUG DISCONTINUED.
     Route: 048
     Dates: start: 20080714, end: 20090608
  3. KAKKON-TO [Concomitant]
     Route: 048
  4. BENET [Concomitant]
     Route: 048
     Dates: start: 20081216
  5. METOLATE [Concomitant]
     Route: 048
     Dates: start: 20090609, end: 20090809
  6. IDOMETHINE [Concomitant]
     Dosage: FORM: EXT. APPLICATION LIQUID MEDICINE.
     Route: 062
     Dates: start: 20090609, end: 20090918
  7. KETOPROFEN [Concomitant]
     Dosage: FORM: EXT. PREPARATION.
     Route: 062
     Dates: start: 20090410, end: 20091109

REACTIONS (2)
  - HEPATIC FUNCTION ABNORMAL [None]
  - LYMPH NODE TUBERCULOSIS [None]
